FAERS Safety Report 25346381 (Version 2)
Quarter: 2025Q2

REPORT INFORMATION
  Report Type: Spontaneous
  Country: JP (occurrence: JP)
  Receive Date: 20250522
  Receipt Date: 20250526
  Transmission Date: 20250717
  Serious: Yes (Hospitalization, Other)
  Sender: MERCK SHARP & DOHME LLC
  Company Number: JP-009507513-2287487

PATIENT
  Age: 73 Year
  Sex: Female

DRUGS (2)
  1. KEYTRUDA [Suspect]
     Active Substance: PEMBROLIZUMAB
     Indication: Adrenal gland cancer
  2. ENFORTUMAB VEDOTIN [Suspect]
     Active Substance: ENFORTUMAB VEDOTIN
     Indication: Adrenal gland cancer

REACTIONS (8)
  - Feeling abnormal [Recovering/Resolving]
  - Decreased appetite [Unknown]
  - Cortisol decreased [Unknown]
  - Pyrexia [Recovering/Resolving]
  - Alanine aminotransferase abnormal [Unknown]
  - Malignant neoplasm progression [Unknown]
  - Aspartate aminotransferase abnormal [Unknown]
  - Blood lactate dehydrogenase abnormal [Unknown]
